FAERS Safety Report 17985622 (Version 1)
Quarter: 2020Q3

REPORT INFORMATION
  Report Type: Report from Study
  Country: CA (occurrence: CA)
  Receive Date: 20200706
  Receipt Date: 20200706
  Transmission Date: 20201103
  Serious: Yes (Other)
  Sender: FDA-Public Use
  Company Number: CA-JNJFOC-20200638642

PATIENT
  Sex: Male
  Weight: 55 kg

DRUGS (2)
  1. STELARA [Suspect]
     Active Substance: USTEKINUMAB
     Indication: CROHN^S DISEASE
     Route: 058
  2. STELARA [Suspect]
     Active Substance: USTEKINUMAB

REACTIONS (7)
  - Speech disorder [Unknown]
  - Facial asymmetry [Unknown]
  - Dizziness [Unknown]
  - Throat cancer [Unknown]
  - Asthenia [Unknown]
  - Lip oedema [Unknown]
  - Oedema [Unknown]
